FAERS Safety Report 8506178-2 (Version None)
Quarter: 2012Q3

REPORT INFORMATION
  Report Type: 
  Country: None (occurrence: None)
  Receive Date: 20120712
  Receipt Date: 20120524
  Transmission Date: 20120928
  Serious: No
  Sender: FDA-Public Use
  Company Number: US-MUTUAL PHARMACEUTICAL COMPANY, INC.-IMPR20120001

PATIENT
  Sex: Male
  Weight: 72.64 kg

DRUGS (8)
  1. ASPIRIN [Concomitant]
     Indication: CARDIOVASCULAR EVENT PROPHYLAXIS
     Route: 048
  2. TERAZOSIN HCL [Concomitant]
     Indication: BLOOD CHOLESTEROL INCREASED
     Route: 048
  3. D3-1000 [Concomitant]
     Indication: VITAMIN SUPPLEMENTATION
     Route: 048
  4. DILTIAZEM 420 MG CAPSULES [Concomitant]
     Indication: HYPERTENSION
     Route: 048
  5. ATENOLOL [Concomitant]
     Indication: HYPERTENSION
     Route: 048
  6. PRAVASTATIN [Concomitant]
     Indication: BLOOD CHOLESTEROL INCREASED
     Route: 048
  7. IMIPRAMINE HYDROCHLORIDE [Suspect]
     Indication: INCONTINENCE
     Route: 048
     Dates: start: 20120426, end: 20120427
  8. HYDROCHLOROTHIAZIDE [Concomitant]
     Indication: HYPERTENSION
     Route: 048

REACTIONS (6)
  - DIZZINESS [None]
  - NERVOUSNESS [None]
  - CONSTIPATION [None]
  - OFF LABEL USE [None]
  - AGEUSIA [None]
  - DRY MOUTH [None]
